FAERS Safety Report 6109505-9 (Version None)
Quarter: 2009Q1

REPORT INFORMATION
  Report Type: 
  Country: None (occurrence: None)
  Receive Date: 20090306
  Receipt Date: 20090220
  Transmission Date: 20090719
  Serious: Yes (Hospitalization)
  Sender: FDA-Public Use
  Company Number: 2008PL000161

PATIENT
  Age: 60 Year
  Sex: Female

DRUGS (10)
  1. LOTRONEX [Suspect]
     Indication: IRRITABLE BOWEL SYNDROME
     Dosage: 0.5 MG; BIW; PO
     Route: 048
     Dates: start: 20081001
  2. ZOCOR [Concomitant]
  3. MAXZIDE [Concomitant]
  4. RELAFEN [Concomitant]
  5. METROGEL [Concomitant]
  6. NULEV [Concomitant]
  7. DARVOCET [Concomitant]
  8. DONNATAI [Concomitant]
  9. TRIAMTERENE [Concomitant]
  10. HYDROCHLOROTHIAZIDE [Concomitant]

REACTIONS (18)
  - ADHESION [None]
  - ANAEMIA [None]
  - CARDIOVASCULAR INSUFFICIENCY [None]
  - COLITIS ISCHAEMIC [None]
  - CONDITION AGGRAVATED [None]
  - CULTURE POSITIVE [None]
  - ELECTROLYTE IMBALANCE [None]
  - HAEMORRHOIDS [None]
  - ILEUS PARALYTIC [None]
  - IRRITABLE BOWEL SYNDROME [None]
  - MESENTERIC VASCULAR INSUFFICIENCY [None]
  - METABOLIC ACIDOSIS [None]
  - NAUSEA [None]
  - PLEURAL EFFUSION [None]
  - RENAL FAILURE CHRONIC [None]
  - SEPSIS [None]
  - STAPHYLOCOCCAL INFECTION [None]
  - VOMITING [None]
